FAERS Safety Report 7211009-7 (Version None)
Quarter: 2011Q1

REPORT INFORMATION
  Report Type: 
  Country: None (occurrence: None)
  Receive Date: 20110105
  Receipt Date: 20101228
  Transmission Date: 20110831
  Serious: Yes (Other)
  Sender: FDA-Public Use
  Company Number: B0691657A

PATIENT
  Sex: Female

DRUGS (1)
  1. SERETIDE DISKUS [Suspect]
     Indication: PRODUCT USED FOR UNKNOWN INDICATION
     Route: 065

REACTIONS (3)
  - DYSPNOEA [None]
  - PRODUCT QUALITY ISSUE [None]
  - ASTHMA [None]
